FAERS Safety Report 24838273 (Version 3)
Quarter: 2025Q3

REPORT INFORMATION
  Report Type: Spontaneous
  Country: US (occurrence: US)
  Receive Date: 20250113
  Receipt Date: 20250715
  Transmission Date: 20251021
  Serious: No
  Sender: PFIZER
  Company Number: US-PFIZER INC-202400269152

PATIENT
  Age: 59 Year
  Sex: Female

DRUGS (17)
  1. CIBINQO [Suspect]
     Active Substance: ABROCITINIB
     Indication: Dermatitis atopic
     Dosage: 100 MG, 1X/DAY
     Route: 048
     Dates: start: 20250122
  2. CIBINQO [Suspect]
     Active Substance: ABROCITINIB
     Indication: Hypergammaglobulinaemia
     Dosage: 100 MG, 1X/DAY
     Route: 048
  3. ARMOUR THYROID [Concomitant]
     Active Substance: THYROID, PORCINE
  4. CLOBETASOL [Concomitant]
     Active Substance: CLOBETASOL
  5. CLONAZEPAM [Concomitant]
     Active Substance: CLONAZEPAM
  6. DUPIXENT [Concomitant]
     Active Substance: DUPILUMAB
  7. ESZOPICLONE [Concomitant]
     Active Substance: ESZOPICLONE
  8. FLUOCINOLONE ACETONIDE [Concomitant]
     Active Substance: FLUOCINOLONE ACETONIDE
  9. GABAPENTIN [Concomitant]
     Active Substance: GABAPENTIN
  10. HYDROXYZINE HYDROCHLORIDE [Concomitant]
     Active Substance: HYDROXYZINE HYDROCHLORIDE
  11. LIOTHYRONINE [Concomitant]
     Active Substance: LIOTHYRONINE
  12. NP THYROID [Concomitant]
     Active Substance: LEVOTHYROXINE\LIOTHYRONINE
  13. ONDANSETRON [Concomitant]
     Active Substance: ONDANSETRON
  14. PREDNISONE [Concomitant]
     Active Substance: PREDNISONE
  15. PROGESTERONE [Concomitant]
     Active Substance: PROGESTERONE
  16. SULFAMETHOXAZOLE\TRIMETHOPRIM [Concomitant]
     Active Substance: SULFAMETHOXAZOLE\TRIMETHOPRIM
  17. TIROSINT [Concomitant]
     Active Substance: LEVOTHYROXINE SODIUM

REACTIONS (2)
  - Drug ineffective [Unknown]
  - Sleep disorder [Unknown]
